FAERS Safety Report 24742006 (Version 1)
Quarter: 2024Q4

REPORT INFORMATION
  Report Type: Spontaneous
  Country: US (occurrence: None)
  Receive Date: 20241213
  Receipt Date: 20241213
  Transmission Date: 20250114
  Serious: Yes (Disabling)
  Sender: Public
  Company Number: None

PATIENT
  Age: 84 Year
  Sex: Male
  Weight: 101.25 kg

DRUGS (3)
  1. PACERONE [Suspect]
     Active Substance: AMIODARONE HYDROCHLORIDE
     Indication: Atrial fibrillation
     Dosage: ?1 TABLET ORAL
     Route: 048
     Dates: start: 20240510, end: 20241101
  2. METOPROLOL [Concomitant]
     Active Substance: METOPROLOL
  3. DEVICE [Concomitant]
     Active Substance: DEVICE

REACTIONS (3)
  - Visual impairment [None]
  - Illusion [None]
  - Impaired driving ability [None]

NARRATIVE: CASE EVENT DATE: 20241020
